FAERS Safety Report 5809883-1 (Version None)
Quarter: 2008Q3

REPORT INFORMATION
  Report Type: 
  Country: None (occurrence: None)
  Receive Date: 20080709
  Receipt Date: 20080703
  Transmission Date: 20090109
  Serious: Yes (Life-Threatening, Hospitalization)
  Sender: FDA-Public Use
  Company Number: 151-21880-08051454

PATIENT
  Age: 65 Year
  Sex: Male

DRUGS (8)
  1. REVLIMID [Suspect]
     Indication: MULTIPLE MYELOMA
     Dosage: 25 MG, 1 IN 1 D, ORAL
     Route: 048
     Dates: start: 20070120
  2. DEXAMETHASONE [Concomitant]
  3. GABAPENTIN [Concomitant]
  4. ACETAMINOPHEN [Concomitant]
  5. ZESTRIL [Concomitant]
  6. MAGNESIUM (MAGNESIUM) [Concomitant]
  7. TIZANIDINE HCL [Concomitant]
  8. LANSOPRAZOLE [Concomitant]

REACTIONS (6)
  - BALANCE DISORDER [None]
  - BRONCHOPNEUMOPATHY [None]
  - LEUKOPENIA [None]
  - LUNG INFECTION [None]
  - MUSCLE SPASMS [None]
  - NEUTROPENIA [None]
